FAERS Safety Report 5420171-8 (Version None)
Quarter: 2007Q3

REPORT INFORMATION
  Report Type: 
  Country: None (occurrence: None)
  Receive Date: 20070820
  Receipt Date: 20070801
  Transmission Date: 20080115
  Serious: No
  Sender: FDA-Public Use
  Company Number: US-BOEHRINGER INGELHEIM PHARMACEUTICALS, INC.-2007-BP-07820BP

PATIENT
  Sex: Female

DRUGS (10)
  1. SPIRIVA [Suspect]
     Indication: CHRONIC OBSTRUCTIVE PULMONARY DISEASE
     Route: 055
     Dates: start: 20040101
  2. SPIRIVA [Suspect]
     Indication: DYSPNOEA
  3. SEREVENT [Concomitant]
     Indication: CHRONIC OBSTRUCTIVE PULMONARY DISEASE
  4. LISINOPRIL [Concomitant]
     Indication: HYPERTENSION
  5. ALBUTEROL [Concomitant]
     Indication: CHRONIC OBSTRUCTIVE PULMONARY DISEASE
  6. CLARITIN [Concomitant]
  7. CARDIZEM LA [Concomitant]
  8. ZESTRIL [Concomitant]
  9. HYDROCHLOROTHIAZIDE [Concomitant]
  10. BONIVA [Concomitant]

REACTIONS (1)
  - DRUG INEFFECTIVE [None]
